FAERS Safety Report 15256690 (Version 2)
Quarter: 2018Q3

REPORT INFORMATION
  Report Type: Report from Study
  Country: None (occurrence: BR)
  Receive Date: 20180808
  Receipt Date: 20180813
  Transmission Date: 20181010
  Serious: Yes (Other)
  Sender: FDA-Public Use
  Company Number: BR-ABBVIE-18P-020-2442095-00

PATIENT
  Sex: Female
  Weight: 44 kg

DRUGS (1)
  1. HUMIRA [Suspect]
     Active Substance: ADALIMUMAB
     Indication: PRODUCT USED FOR UNKNOWN INDICATION
     Route: 058
     Dates: start: 2015, end: 20180803

REACTIONS (9)
  - Bedridden [Unknown]
  - Malaise [Recovered/Resolved]
  - Dyspnoea [Recovered/Resolved]
  - Drug effect incomplete [Recovered/Resolved]
  - Arthralgia [Recovered/Resolved]
  - Myocardial oedema [Unknown]
  - Pain [Recovered/Resolved]
  - Loss of personal independence in daily activities [Recovered/Resolved]
  - Arthritis [Recovered/Resolved]

NARRATIVE: CASE EVENT DATE: 201807
